FAERS Safety Report 22172318 (Version 1)
Quarter: 2023Q2

REPORT INFORMATION
  Report Type: Spontaneous
  Country: CA (occurrence: CA)
  Receive Date: 20230404
  Receipt Date: 20230404
  Transmission Date: 20230721
  Serious: Yes (Other)
  Sender: FDA-Public Use
  Company Number: CA-PFIZER INC-202300137905

PATIENT
  Age: 76 Year
  Sex: Female

DRUGS (3)
  1. OXALIPLATIN [Suspect]
     Active Substance: OXALIPLATIN
     Indication: Colon cancer
     Dosage: 166 MG
  2. OXALIPLATIN [Suspect]
     Active Substance: OXALIPLATIN
     Dosage: 208 MG
  3. CAPECITABINE [Concomitant]
     Active Substance: CAPECITABINE

REACTIONS (7)
  - Hypoaesthesia [Unknown]
  - Loss of control of legs [Unknown]
  - Paraesthesia [Unknown]
  - Aneurysm [Unknown]
  - Dyspnoea [Unknown]
  - Facial paresis [Unknown]
  - Pharyngeal swelling [Unknown]
